FAERS Safety Report 13242153 (Version 1)
Quarter: 2017Q1

REPORT INFORMATION
  Report Type: Spontaneous
  Country: US (occurrence: US)
  Receive Date: 20170216
  Receipt Date: 20170216
  Transmission Date: 20170428
  Serious: Yes (Death, Life-Threatening, Hospitalization)
  Sender: FDA-Public Use
  Company Number: None

PATIENT
  Age: 51 Year
  Sex: Male
  Weight: 106.6 kg

DRUGS (7)
  1. GLYCOSAMINE [Concomitant]
  2. OMEGA ACID [Concomitant]
  3. VITAMIN D [Concomitant]
     Active Substance: CHOLECALCIFEROL
  4. CLOMID [Suspect]
     Active Substance: CLOMIPHENE CITRATE
     Indication: BLOOD TESTOSTERONE DECREASED
     Dosage: ?          QUANTITY:I VAT-AWE ?R;?
     Route: 048
     Dates: start: 201312, end: 201607
  5. OMEPRAZOLE. [Concomitant]
     Active Substance: OMEPRAZOLE
  6. VICODIN/LORTAB [Concomitant]
  7. IBUPROFEN. [Concomitant]
     Active Substance: IBUPROFEN

REACTIONS (4)
  - Pulmonary embolism [None]
  - Pneumonia [None]
  - Cardio-respiratory arrest [None]
  - Syncope [None]

NARRATIVE: CASE EVENT DATE: 20160717
